FAERS Safety Report 5201333-1 (Version None)
Quarter: 2007Q1

REPORT INFORMATION
  Report Type: 
  Country: None (occurrence: None)
  Receive Date: 20070108
  Receipt Date: 20061226
  Transmission Date: 20070707
  Serious: Yes (Other)
  Sender: FDA-Public Use
  Company Number: FR-BRISTOL-MYERS SQUIBB COMPANY-13633565

PATIENT
  Age: 1 Day
  Sex: Female

DRUGS (6)
  1. ZERIT [Suspect]
     Route: 064
     Dates: end: 19980407
  2. EPIVIR [Suspect]
     Route: 064
     Dates: end: 19980407
  3. RIFADIN [Suspect]
     Route: 064
     Dates: end: 19980407
  4. RIMIFON [Suspect]
     Route: 064
     Dates: end: 19980407
  5. RETROVIR [Concomitant]
  6. EPIVIR [Concomitant]

REACTIONS (4)
  - CARDIAC MURMUR [None]
  - FOETAL DISTRESS SYNDROME [None]
  - MECONIUM IN AMNIOTIC FLUID [None]
  - PREGNANCY [None]
